FAERS Safety Report 16896662 (Version 2)
Quarter: 2019Q4

REPORT INFORMATION
  Report Type: Report from Study
  Country: US (occurrence: US)
  Receive Date: 20191008
  Receipt Date: 20191031
  Transmission Date: 20200122
  Serious: Yes (Death, Other)
  Sender: FDA-Public Use
  Company Number: US-ACTELION-A-US2017-159199

PATIENT
  Age: 86 Year
  Sex: Male

DRUGS (1)
  1. OPSUMIT [Suspect]
     Active Substance: MACITENTAN
     Indication: PULMONARY ARTERIAL HYPERTENSION
     Dosage: 10 MG, QD
     Route: 048
     Dates: start: 20160714, end: 20190811

REACTIONS (6)
  - Gastrointestinal haemorrhage [Fatal]
  - Iron deficiency [Fatal]
  - Haemorrhage [Unknown]
  - Anaemia [Unknown]
  - Cardiac failure acute [Fatal]
  - Transfusion [Unknown]

NARRATIVE: CASE EVENT DATE: 20190811
